FAERS Safety Report 4609627-5 (Version None)
Quarter: 2005Q1

REPORT INFORMATION
  Report Type: 
  Country: None (occurrence: None)
  Receive Date: 20050314
  Receipt Date: 20050228
  Transmission Date: 20050727
  Serious: Yes (Other)
  Sender: FDA-Public Use
  Company Number: 2005038092

PATIENT
  Age: 13 Year
  Sex: Male

DRUGS (6)
  1. ATARAX [Suspect]
     Indication: ANXIETY
     Dosage: 25 MG, INTRAVENOUS
     Route: 042
     Dates: start: 20050125, end: 20050125
  2. ATROPINE SULFATE [Suspect]
     Indication: ANXIETY
     Dosage: 0.9 MG, PARENTERAL
     Route: 051
     Dates: start: 20050125, end: 20050125
  3. KETALAR [Suspect]
     Indication: ANXIETY
     Dosage: 32 MG, INTRAVENOUS
     Route: 042
     Dates: start: 20050125, end: 20050125
  4. PENTAZOCINE LACTATE [Suspect]
     Indication: ANXIETY
     Dosage: 15 MG, INTRAVENOUS
     Route: 042
     Dates: start: 20050125, end: 20050125
  5. LIDOCAINE HYDROCHLORIDE [Suspect]
     Indication: ANXIETY
     Dosage: 50 MG, PARENTERAL
     Route: 051
     Dates: start: 20050125, end: 20050125
  6. MIDAZOLAM HCL [Suspect]
     Indication: ANXIETY
     Dosage: 5 MG, INTRAVENOUS
     Route: 042
     Dates: start: 20050125, end: 20050125

REACTIONS (2)
  - LARYNGEAL DYSPNOEA [None]
  - LARYNGEAL OEDEMA [None]
